FAERS Safety Report 7422323-4 (Version None)
Quarter: 2011Q2

REPORT INFORMATION
  Report Type: 
  Country: None (occurrence: None)
  Receive Date: 20110419
  Receipt Date: 20110411
  Transmission Date: 20111010
  Serious: No
  Sender: FDA-Public Use
  Company Number: US-BIOGENIDEC-2010BI016027

PATIENT
  Age: 55 Year
  Sex: Female

DRUGS (1)
  1. TYSABRI [Suspect]
     Indication: MULTIPLE SCLEROSIS
     Route: 042
     Dates: start: 20091112

REACTIONS (13)
  - BACK PAIN [None]
  - PAIN [None]
  - FATIGUE [None]
  - BONE PAIN [None]
  - MEMORY IMPAIRMENT [None]
  - INSOMNIA [None]
  - DEPRESSION [None]
  - HEADACHE [None]
  - EAR PAIN [None]
  - NECK PAIN [None]
  - MUSCULOSKELETAL STIFFNESS [None]
  - PAIN IN EXTREMITY [None]
  - ASTHENIA [None]
